FAERS Safety Report 6998695-1 (Version None)
Quarter: 2010Q3

REPORT INFORMATION
  Report Type: 
  Country: None (occurrence: None)
  Receive Date: 20100920
  Receipt Date: 20100204
  Transmission Date: 20110219
  Serious: No
  Sender: FDA-Public Use
  Company Number: US-ASTRAZENECA-2009SE16599

PATIENT
  Age: 7679 Day
  Sex: Female
  Weight: 106.1 kg

DRUGS (4)
  1. SEROQUEL [Suspect]
     Indication: SCHIZOPHRENIA
     Dosage: 50MG-150MG
     Route: 048
     Dates: start: 19990101, end: 20030101
  2. ABILIFY [Concomitant]
  3. GEODON [Concomitant]
  4. ZYPREXA [Concomitant]
     Dosage: 50MG-100MG

REACTIONS (3)
  - OBESITY [None]
  - OVERDOSE [None]
  - TYPE 2 DIABETES MELLITUS [None]
